FAERS Safety Report 7233355-3 (Version None)
Quarter: 2011Q1

REPORT INFORMATION
  Report Type: 
  Country: None (occurrence: None)
  Receive Date: 20110119
  Receipt Date: 20110114
  Transmission Date: 20110831
  Serious: Yes (Other)
  Sender: FDA-Public Use
  Company Number: BR-ROCHE-749747

PATIENT
  Sex: Female
  Weight: 98 kg

DRUGS (3)
  1. RIVOTRIL [Suspect]
     Indication: INSOMNIA
     Dosage: DOSE: 2.5 MG/ML. START DATE: MORE THAN  1 YEAR AGO
     Route: 048
     Dates: start: 20090101
  2. ENALAPRIL MALEATE [Concomitant]
     Indication: HYPERTENSION
  3. RIVOTRIL [Suspect]
     Dosage: DOSE: 2.5 MG/ML
     Route: 048

REACTIONS (12)
  - FEELING ABNORMAL [None]
  - HAIR DISORDER [None]
  - ABNORMAL SENSATION IN EYE [None]
  - AMNESIA [None]
  - RED BLOOD CELL SEDIMENTATION RATE INCREASED [None]
  - SENSORY DISTURBANCE [None]
  - HAIR GROWTH ABNORMAL [None]
  - ASTHENIA [None]
  - INFLAMMATION [None]
  - NAUSEA [None]
  - MALAISE [None]
  - COGNITIVE DISORDER [None]
